FAERS Safety Report 24377401 (Version 1)
Quarter: 2024Q3

REPORT INFORMATION
  Report Type: Spontaneous
  Country: CN (occurrence: CN)
  Receive Date: 20240930
  Receipt Date: 20240930
  Transmission Date: 20241016
  Serious: Yes (Other)
  Sender: SANOFI AVENTIS
  Company Number: CN-SA-2024SA278676

PATIENT
  Age: 72 Year
  Sex: Male
  Weight: 53 kg

DRUGS (2)
  1. OXALIPLATIN [Suspect]
     Active Substance: OXALIPLATIN
     Indication: Carcinoid tumour of the stomach
     Dosage: 100 MG, 1X
     Route: 041
     Dates: start: 20240918, end: 20240918
  2. PACLITAXEL [Suspect]
     Active Substance: PACLITAXEL
     Indication: Carcinoid tumour of the stomach
     Dosage: 0.1 G, 1X
     Route: 041
     Dates: start: 20240918, end: 20240918

REACTIONS (7)
  - Gastrointestinal disorder [Recovering/Resolving]
  - Abdominal distension [Recovering/Resolving]
  - Abdominal pain upper [Recovering/Resolving]
  - Hiccups [Recovering/Resolving]
  - Nausea [Recovering/Resolving]
  - Dysphoria [Recovering/Resolving]
  - Vomiting [Recovering/Resolving]

NARRATIVE: CASE EVENT DATE: 20240918
